FAERS Safety Report 15564141 (Version 2)
Quarter: 2019Q1

REPORT INFORMATION
  Report Type: Spontaneous
  Country: US (occurrence: US)
  Receive Date: 20181030
  Receipt Date: 20190103
  Transmission Date: 20190417
  Serious: Yes (Death, Congenital Anomaly)
  Sender: FDA-Public Use
  Company Number: US-BIOGEN-2018BI00650028

PATIENT

DRUGS (1)
  1. TYSABRI [Suspect]
     Active Substance: NATALIZUMAB
     Indication: MULTIPLE SCLEROSIS
     Route: 064
     Dates: start: 201607, end: 20180831

REACTIONS (1)
  - Foetal malformation [Fatal]

NARRATIVE: CASE EVENT DATE: 2018
